FAERS Safety Report 12799305 (Version 1)
Quarter: 2016Q3

REPORT INFORMATION
  Report Type: Spontaneous
  Country: US (occurrence: US)
  Receive Date: 20160930
  Receipt Date: 20160930
  Transmission Date: 20161109
  Serious: No
  Sender: FDA-Public Use
  Company Number: US-PFIZER INC-2016456384

PATIENT
  Age: 60 Year
  Sex: Male
  Weight: 65.77 kg

DRUGS (3)
  1. LYRICA [Suspect]
     Active Substance: PREGABALIN
     Dosage: 75 MG, 3X/DAY (A CAPSULE AT 8 AM, BETWEEN 4:30PM-5PM AND BETWEEN 10-11PM)
     Dates: start: 20160923, end: 20160926
  2. LYRICA [Suspect]
     Active Substance: PREGABALIN
     Indication: EPILEPSY
     Dosage: 75 MG, 2X/DAY
     Dates: start: 201608, end: 20160923
  3. LYRICA [Suspect]
     Active Substance: PREGABALIN
     Indication: SPINAL CORD INJURY
     Dosage: UNK
     Dates: start: 201607, end: 201608

REACTIONS (8)
  - Headache [Recovered/Resolved]
  - Drug effect incomplete [Unknown]
  - Back pain [Recovered/Resolved]
  - Drug dose omission [Unknown]
  - Neck pain [Recovered/Resolved]
  - Pain in extremity [Unknown]
  - Withdrawal syndrome [Unknown]
  - Pain [Recovered/Resolved]

NARRATIVE: CASE EVENT DATE: 201607
